FAERS Safety Report 9784548 (Version 1)
Quarter: 2013Q4

REPORT INFORMATION
  Report Type: Other
  Country: US (occurrence: US)
  Receive Date: 20131226
  Receipt Date: 20131226
  Transmission Date: 20140711
  Serious: Yes (Hospitalization)
  Sender: FDA-Public Use
  Company Number: US-RB-061747-13

PATIENT
  Sex: Female

DRUGS (2)
  1. BUPRENORPHINE UNSPECIFIED [Suspect]
     Indication: PAIN
     Dosage: TAKING 8 MG EVERY 8 HOURS
     Route: 060
  2. HYDROMORPHONE [Suspect]
     Indication: PROCEDURAL PAIN
     Dosage: RECEIVED 4 MG EVERY 4 TO 6 HOURS, MAXIMUM 20 MG PER DAY FOR FIVE DAYS
     Route: 048

REACTIONS (4)
  - Vaginal disorder [Unknown]
  - Off label use [Recovered/Resolved]
  - Procedural pain [Unknown]
  - Therapeutic product ineffective [Unknown]
